FAERS Safety Report 8584418-1 (Version None)
Quarter: 2012Q3

REPORT INFORMATION
  Report Type: 
  Country: None (occurrence: None)
  Receive Date: 20120810
  Receipt Date: 20120731
  Transmission Date: 20120928
  Serious: Yes (Death, Hospitalization)
  Sender: FDA-Public Use
  Company Number: CH-BRISTOL-MYERS SQUIBB COMPANY-16848152

PATIENT
  Age: 65 Year
  Sex: Male

DRUGS (3)
  1. TAXOL [Suspect]
     Indication: PHARYNGEAL CANCER STAGE UNSPECIFIED
  2. CARBOPLATIN [Suspect]
     Indication: PHARYNGEAL CANCER STAGE UNSPECIFIED
  3. CETUXIMAB [Suspect]
     Indication: PHARYNGEAL CANCER STAGE UNSPECIFIED
     Dosage: LOADING DOSE:600MG THEN 400MG

REACTIONS (5)
  - ACUTE RESPIRATORY DISTRESS SYNDROME [None]
  - INTERSTITIAL LUNG DISEASE [None]
  - DERMATITIS [None]
  - GASTROINTESTINAL HAEMORRHAGE [None]
  - MULTI-ORGAN FAILURE [None]
